FAERS Safety Report 5256485-4 (Version None)
Quarter: 2007Q1

REPORT INFORMATION
  Report Type: 
  Country: None (occurrence: None)
  Receive Date: 20070306
  Receipt Date: 20070301
  Transmission Date: 20070707
  Serious: Yes (Hospitalization)
  Sender: FDA-Public Use
  Company Number: JP-JPN-A200700484

PATIENT
  Age: 76 Year
  Sex: Female
  Weight: 52 kg

DRUGS (10)
  1. VALTREX [Suspect]
     Indication: HERPES ZOSTER
     Dosage: 1000MG PER DAY
     Route: 048
     Dates: start: 20070206, end: 20070206
  2. FUROSEMIDE [Concomitant]
     Route: 065
  3. PARIET [Concomitant]
     Route: 048
  4. PROMAC [Concomitant]
     Route: 048
  5. ARTIST [Concomitant]
     Route: 048
  6. ADALAT [Concomitant]
     Route: 048
  7. ARGAMATE [Concomitant]
     Route: 048
  8. ASPIRIN [Concomitant]
     Route: 048
  9. GASMOTIN [Concomitant]
     Route: 048
  10. INDOMETHACIN [Concomitant]
     Route: 062

REACTIONS (3)
  - DEPRESSED LEVEL OF CONSCIOUSNESS [None]
  - DYSLALIA [None]
  - HEMIPLEGIA [None]
